FAERS Safety Report 21837307 (Version 1)
Quarter: 2023Q1

REPORT INFORMATION
  Report Type: Spontaneous
  Country: US (occurrence: US)
  Receive Date: 20230109
  Receipt Date: 20230109
  Transmission Date: 20230418
  Serious: No
  Sender: FDA-Public Use
  Company Number: US-PFIZER INC-202300003518

PATIENT
  Age: 86 Year
  Sex: Female
  Weight: 61.23 kg

DRUGS (1)
  1. PAXLOVID [Suspect]
     Active Substance: NIRMATRELVIR\RITONAVIR
     Indication: COVID-19 treatment
     Dosage: 3 DF ONCE THEN 2 DF AFTER
     Dates: start: 20221231

REACTIONS (3)
  - Dysgeusia [Unknown]
  - Feeling abnormal [Unknown]
  - Incorrect dose administered [Unknown]
